FAERS Safety Report 16378053 (Version 1)
Quarter: 2019Q2

REPORT INFORMATION
  Report Type: Spontaneous
  Country: CH (occurrence: CH)
  Receive Date: 20190531
  Receipt Date: 20190531
  Transmission Date: 20190711
  Serious: Yes (Hospitalization)
  Sender: FDA-Public Use
  Company Number: CH-PFIZER INC-2019227384

PATIENT
  Age: 74 Year
  Sex: Male

DRUGS (2)
  1. DILZEM [Suspect]
     Active Substance: DILTIAZEM
     Dosage: UNK
  2. CORDARONE [Suspect]
     Active Substance: AMIODARONE HYDROCHLORIDE
     Dosage: UNK

REACTIONS (3)
  - Drug hypersensitivity [Unknown]
  - Lichenoid keratosis [Unknown]
  - Drug intolerance [Unknown]
